FAERS Safety Report 8017552-5 (Version None)
Quarter: 2011Q4

REPORT INFORMATION
  Report Type: 
  Country: None (occurrence: None)
  Receive Date: 20111228
  Receipt Date: 20111213
  Transmission Date: 20120403
  Serious: Yes (Life-Threatening, Disabling)
  Sender: FDA-Public Use
  Company Number: 2011P1014266

PATIENT
  Age: 53 Year
  Sex: Female
  Weight: 83.9154 kg

DRUGS (16)
  1. KLONOPIN [Concomitant]
  2. FENTANYL CITRATE [Suspect]
     Indication: PAIN
     Dosage: 1 PATCH;Q72H;TDER
     Route: 062
     Dates: start: 20111201
  3. SYNTHROID [Concomitant]
  4. PROGESTERONE [Concomitant]
  5. NITROFURANTOIN MONO-MCR [Concomitant]
  6. IRON [Concomitant]
  7. SOMA [Concomitant]
  8. CALCIUM WITH VITAMIN D [Concomitant]
  9. LYRICA [Concomitant]
  10. ESTEROL [Concomitant]
  11. COLACE [Concomitant]
  12. BUPROPION HCL [Concomitant]
  13. FLUOXETINE HYDROCHLORIDE [Concomitant]
  14. PRILOSEC [Concomitant]
  15. OXYCODONE HCL [Concomitant]
  16. MULTIVITAMIN GUMMIES [Concomitant]

REACTIONS (10)
  - APPLICATION SITE WARMTH [None]
  - PAIN IN EXTREMITY [None]
  - WRONG TECHNIQUE IN DRUG USAGE PROCESS [None]
  - APPLICATION SITE PRURITUS [None]
  - MOBILITY DECREASED [None]
  - GAIT DISTURBANCE [None]
  - ABASIA [None]
  - INADEQUATE ANALGESIA [None]
  - PRODUCT ADHESION ISSUE [None]
  - BEDRIDDEN [None]
